FAERS Safety Report 9308768 (Version 1)
Quarter: 2013Q2

REPORT INFORMATION
  Report Type: Spontaneous
  Country: US (occurrence: US)
  Receive Date: 20130524
  Receipt Date: 20130524
  Transmission Date: 20140414
  Serious: No
  Sender: FDA-Public Use
  Company Number: US-NOVEN-13US006230

PATIENT
  Age: 44 Year
  Sex: Female
  Weight: 77.1 kg

DRUGS (2)
  1. MINIVELLE [Suspect]
     Indication: PRODUCT USED FOR UNKNOWN INDICATION
     Dosage: 0.1 MG TWICE A WEEK
     Route: 062
     Dates: start: 20130107
  2. MINIVELLE [Suspect]
     Dosage: 0.05 MG, UNK
     Route: 062

REACTIONS (6)
  - Mood swings [Recovering/Resolving]
  - Oestradiol increased [Recovering/Resolving]
  - Depressed mood [Recovering/Resolving]
  - Fatigue [Recovering/Resolving]
  - Breast tenderness [Recovering/Resolving]
  - Nipple pain [Recovering/Resolving]
